FAERS Safety Report 20165891 (Version 1)
Quarter: 2021Q4

REPORT INFORMATION
  Report Type: Spontaneous
  Country: US (occurrence: US)
  Receive Date: 20211209
  Receipt Date: 20211209
  Transmission Date: 20220303
  Serious: Yes (Hospitalization)
  Sender: FDA-Public Use
  Company Number: US-MYLANLABS-2021M1090617

PATIENT
  Age: 62 Year
  Sex: Male

DRUGS (2)
  1. CYTARABINE [Suspect]
     Active Substance: CYTARABINE
     Indication: Myeloid leukaemia
     Dosage: 200 MILLIGRAM/SQ. METER
     Route: 065
  2. IDARUBICIN [Suspect]
     Active Substance: IDARUBICIN
     Indication: Myeloid leukaemia
     Dosage: UNK
     Route: 065

REACTIONS (2)
  - Hepatic function abnormal [Not Recovered/Not Resolved]
  - Pancytopenia [Not Recovered/Not Resolved]
